FAERS Safety Report 12853977 (Version 3)
Quarter: 2016Q4

REPORT INFORMATION
  Report Type: Spontaneous
  Country: US (occurrence: US)
  Receive Date: 20161017
  Receipt Date: 20161114
  Transmission Date: 20170207
  Serious: Yes (Disabling, Other)
  Sender: FDA-Public Use
  Company Number: US-BRISTOL-MYERS SQUIBB COMPANY-BMS-2016-085162

PATIENT
  Sex: Male
  Weight: 68.4 kg

DRUGS (5)
  1. DEPO-MEDROL [Suspect]
     Active Substance: METHYLPREDNISOLONE ACETATE
     Indication: PAIN
     Dosage: 80 MG, UNK
     Route: 030
     Dates: start: 201507
  2. ASPIRIN                            /00002701/ [Concomitant]
     Active Substance: ASPIRIN
     Indication: PRODUCT USED FOR UNKNOWN INDICATION
     Route: 065
  3. KENALOG-40 [Suspect]
     Active Substance: TRIAMCINOLONE ACETONIDE
     Indication: PAIN
     Route: 065
  4. TRAMADOL. [Suspect]
     Active Substance: TRAMADOL
     Indication: PRODUCT USED FOR UNKNOWN INDICATION
     Route: 065
  5. KENALOG-40 [Suspect]
     Active Substance: TRIAMCINOLONE ACETONIDE
     Indication: POLYARTHRITIS
     Dosage: 60 MG, UNK
     Route: 030
     Dates: start: 20160501

REACTIONS (7)
  - Haemorrhage [Unknown]
  - Muscle atrophy [Unknown]
  - Weight decreased [Unknown]
  - Tooth fracture [Unknown]
  - Overdose [Unknown]
  - Disability [Unknown]
  - Drug ineffective [Unknown]
